FAERS Safety Report 24732523 (Version 1)
Quarter: 2024Q4

REPORT INFORMATION
  Report Type: Report from Study
  Country: US (occurrence: US)
  Receive Date: 20241213
  Receipt Date: 20241213
  Transmission Date: 20250114
  Serious: Yes (Hospitalization, Other)
  Sender: ALEXION PHARMACEUTICALS
  Company Number: US-AstraZeneca-CH-00762997A

PATIENT

DRUGS (4)
  1. EXENATIDE [Suspect]
     Active Substance: EXENATIDE
     Dosage: UNK
  2. EXENATIDE [Suspect]
     Active Substance: EXENATIDE
     Dosage: UNK
     Route: 058
  3. EXENATIDE [Suspect]
     Active Substance: EXENATIDE
     Dosage: UNK
  4. EXENATIDE [Suspect]
     Active Substance: EXENATIDE
     Dosage: UNK
     Route: 058

REACTIONS (2)
  - Illness [Unknown]
  - Deafness [Unknown]
